FAERS Safety Report 6931339-3 (Version None)
Quarter: 2010Q3

REPORT INFORMATION
  Report Type: 
  Country: None (occurrence: None)
  Receive Date: 20100818
  Receipt Date: 20100804
  Transmission Date: 20110219
  Serious: Yes (Other)
  Sender: FDA-Public Use
  Company Number: PHHY2010JP51722

PATIENT
  Age: 54 Year
  Sex: Male

DRUGS (1)
  1. CYCLOSPORINE [Suspect]
     Indication: LIVER TRANSPLANT

REACTIONS (3)
  - BLOOD LACTATE DEHYDROGENASE INCREASED [None]
  - SMALL-FOR-SIZE LIVER SYNDROME [None]
  - THROMBOTIC THROMBOCYTOPENIC PURPURA [None]
